FAERS Safety Report 7647722-7 (Version None)
Quarter: 2011Q3

REPORT INFORMATION
  Report Type: 
  Country: None (occurrence: None)
  Receive Date: 20110801
  Receipt Date: 20110801
  Transmission Date: 20111222
  Serious: Yes (Life-Threatening, Other)
  Sender: FDA-Public Use
  Company Number: None

PATIENT
  Age: 55 Year
  Sex: Female
  Weight: 70.306 kg

DRUGS (1)
  1. FOSAMAX [Suspect]
     Indication: OSTEOPOROSIS
     Dosage: 70 MG
     Route: 048
     Dates: start: 20110625, end: 20110725

REACTIONS (6)
  - INCONTINENCE [None]
  - MALAISE [None]
  - COUGH [None]
  - EAR INFECTION [None]
  - MIDDLE EAR EFFUSION [None]
  - DIZZINESS [None]
